FAERS Safety Report 4508702-3 (Version None)
Quarter: 2004Q4

REPORT INFORMATION
  Report Type: 
  Country: None (occurrence: None)
  Receive Date: 20041123
  Receipt Date: 20040608
  Transmission Date: 20050328
  Serious: No
  Sender: FDA-Public Use
  Company Number: US-GLAXOSMITHKLINE-A0513832A

PATIENT
  Sex: Female

DRUGS (2)
  1. WELLBUTRIN [Suspect]
     Dosage: 75MG PER DAY
     Route: 048
  2. LEXAPRO [Concomitant]

REACTIONS (2)
  - RASH [None]
  - URTICARIA [None]
